FAERS Safety Report 13589075 (Version 1)
Quarter: 2017Q2

REPORT INFORMATION
  Report Type: Spontaneous
  Country: US (occurrence: US)
  Receive Date: 20170526
  Receipt Date: 20170526
  Transmission Date: 20170830
  Serious: Yes (Other)
  Sender: FDA-Public Use
  Company Number: None

PATIENT
  Age: 75 Year
  Sex: Female
  Weight: 64.35 kg

DRUGS (1)
  1. PROLIA [Suspect]
     Active Substance: DENOSUMAB
     Dosage: ?          OTHER FREQUENCY:ONCE EVERY 6 MONTH;?
     Route: 058

REACTIONS (14)
  - Feeling abnormal [None]
  - Vertigo [None]
  - Bone pain [None]
  - Cough [None]
  - Arthralgia [None]
  - Swelling [None]
  - Oropharyngeal pain [None]
  - Malaise [None]
  - Palpitations [None]
  - Myalgia [None]
  - Pain [None]
  - Ligament disorder [None]
  - Dyspnoea [None]
  - Dysstasia [None]

NARRATIVE: CASE EVENT DATE: 20160523
